FAERS Safety Report 4860399-9 (Version None)
Quarter: 2005Q4

REPORT INFORMATION
  Report Type: 
  Country: None (occurrence: None)
  Receive Date: 20051215
  Receipt Date: 20051202
  Transmission Date: 20060501
  Serious: Yes (Hospitalization, Other)
  Sender: FDA-Public Use
  Company Number: 2005138610

PATIENT
  Sex: Male
  Weight: 82.1011 kg

DRUGS (2)
  1. VIAGRA [Suspect]
     Indication: ERECTILE DYSFUNCTION
     Dosage: UNK (50 MG, PRN); ORAL
     Route: 048
     Dates: start: 20000101
  2. ZYRTEC [Concomitant]

REACTIONS (1)
  - NO ADVERSE EFFECT [None]
